FAERS Safety Report 23514554 (Version 1)
Quarter: 2024Q1

REPORT INFORMATION
  Report Type: Spontaneous
  Country: FR (occurrence: FR)
  Receive Date: 20240212
  Receipt Date: 20240212
  Transmission Date: 20240409
  Serious: Yes (Hospitalization)
  Sender: FDA-Public Use
  Company Number: None

PATIENT
  Age: 72 Year
  Sex: Male
  Weight: 56 kg

DRUGS (1)
  1. KALETRA [Suspect]
     Active Substance: LOPINAVIR\RITONAVIR
     Indication: HIV infection
     Dosage: 80 MG/20 MG, SOLUTION BUVABLE
     Route: 048
     Dates: start: 20231208, end: 20240116

REACTIONS (5)
  - Seizure [Recovered/Resolved]
  - Diarrhoea [Recovered/Resolved]
  - Extrapyramidal disorder [Not Recovered/Not Resolved]
  - Hallucination [Recovered/Resolved]
  - Myoclonus [Not Recovered/Not Resolved]

NARRATIVE: CASE EVENT DATE: 20240109
